FAERS Safety Report 10958133 (Version 1)
Quarter: 2015Q1

REPORT INFORMATION
  Report Type: Spontaneous
  Country: DE (occurrence: DE)
  Receive Date: 20150326
  Receipt Date: 20150326
  Transmission Date: 20150721
  Serious: Yes (Other)
  Sender: FDA-Public Use
  Company Number: DE-JNJFOC-20150313574

PATIENT
  Sex: Female

DRUGS (1)
  1. DOLORTRIPTAN [Suspect]
     Active Substance: ALMOTRIPTAN MALATE
     Indication: MIGRAINE
     Route: 048

REACTIONS (2)
  - Product use issue [Unknown]
  - Arrhythmia [Not Recovered/Not Resolved]
